FAERS Safety Report 4527935-3 (Version None)
Quarter: 2004Q4

REPORT INFORMATION
  Report Type: 
  Country: None (occurrence: None)
  Receive Date: 20041123
  Receipt Date: 20031202
  Transmission Date: 20050328
  Serious: Yes (Other)
  Sender: FDA-Public Use
  Company Number: 2003112234

PATIENT
  Age: 73 Year
  Sex: Female
  Weight: 90.7194 kg

DRUGS (4)
  1. LIPITOR [Suspect]
     Indication: BLOOD CHOLESTEROL INCREASED
     Dosage: 20 MG (DAILY), ORAL
     Route: 048
     Dates: start: 20000501, end: 20031009
  2. WARFARIN SODIUM [Concomitant]
  3. ROFECOXIB [Concomitant]
  4. ATENOLOL [Concomitant]

REACTIONS (7)
  - BLOOD CHOLESTEROL INCREASED [None]
  - BLOOD CREATINE PHOSPHOKINASE INCREASED [None]
  - FALL [None]
  - JOINT INJURY [None]
  - MUSCULAR WEAKNESS [None]
  - MYALGIA [None]
  - URINARY INCONTINENCE [None]
